FAERS Safety Report 9603318 (Version 3)
Quarter: 2013Q4

REPORT INFORMATION
  Report Type: Spontaneous
  Country: JP (occurrence: JP)
  Receive Date: 20131007
  Receipt Date: 20131129
  Transmission Date: 20140711
  Serious: Yes (Death, Hospitalization)
  Sender: FDA-Public Use
  Company Number: JP-ELI_LILLY_AND_COMPANY-JP201310000571

PATIENT
  Age: 80 Year
  Sex: Male
  Weight: 55.7 kg

DRUGS (3)
  1. GEMZAR [Suspect]
     Indication: PANCREATIC CARCINOMA
     Dosage: 1400 MG, UNK
     Route: 042
     Dates: start: 20130122, end: 20130910
  2. NASEA [Concomitant]
     Indication: PROPHYLAXIS OF NAUSEA AND VOMITING
     Dosage: 0.3 MG, UNKNOWN
     Route: 042
     Dates: start: 20130122
  3. ORGADRONE                          /00016002/ [Concomitant]
     Indication: PROPHYLAXIS OF NAUSEA AND VOMITING
     Dosage: 1 DF, UNKNOWN
     Route: 065
     Dates: start: 20130122

REACTIONS (2)
  - Interstitial lung disease [Fatal]
  - Cerebral infarction [Unknown]
